FAERS Safety Report 6875918-0 (Version None)
Quarter: 2010Q3

REPORT INFORMATION
  Report Type: 
  Country: None (occurrence: None)
  Receive Date: 20100727
  Receipt Date: 20100714
  Transmission Date: 20110219
  Serious: Yes (Other)
  Sender: FDA-Public Use
  Company Number: PHHY2010CA29373

PATIENT
  Sex: Male

DRUGS (1)
  1. ZOMETA [Suspect]
     Indication: PROSTATE CANCER
     Dosage: 4 MG EVERY 4 WEEKS
     Route: 042
     Dates: start: 20100410, end: 20100624

REACTIONS (21)
  - ASTHENIA [None]
  - BEDRIDDEN [None]
  - BLOOD ALKALINE PHOSPHATASE INCREASED [None]
  - BLOOD CALCIUM DECREASED [None]
  - BLOOD CREATININE DECREASED [None]
  - DECREASED APPETITE [None]
  - FOOD AVERSION [None]
  - GENERAL PHYSICAL HEALTH DETERIORATION [None]
  - GLOSSODYNIA [None]
  - HAEMOGLOBIN DECREASED [None]
  - LYMPHOCYTE COUNT DECREASED [None]
  - MALAISE [None]
  - METAMYELOCYTE COUNT INCREASED [None]
  - MYELOCYTE COUNT INCREASED [None]
  - ORAL CANDIDIASIS [None]
  - PALLOR [None]
  - PLATELET COUNT INCREASED [None]
  - RED CELL DISTRIBUTION WIDTH INCREASED [None]
  - TONGUE DISORDER [None]
  - TONGUE DRY [None]
  - WEIGHT DECREASED [None]
